FAERS Safety Report 24710240 (Version 4)
Quarter: 2025Q1

REPORT INFORMATION
  Report Type: Report from Study
  Country: US (occurrence: US)
  Receive Date: 20241209
  Receipt Date: 20250212
  Transmission Date: 20250408
  Serious: Yes (Other)
  Sender: TAKEDA
  Company Number: US-TAKEDA-2024TUS120226

PATIENT
  Age: 60 Year
  Sex: Female
  Weight: 68.027 kg

DRUGS (14)
  1. VEDOLIZUMAB [Suspect]
     Active Substance: VEDOLIZUMAB
     Indication: Crohn^s disease
  2. VEDOLIZUMAB [Suspect]
     Active Substance: VEDOLIZUMAB
     Indication: Crohn^s disease
     Dosage: 108 MILLIGRAM, Q2WEEKS
     Dates: start: 20241202
  3. VEDOLIZUMAB [Suspect]
     Active Substance: VEDOLIZUMAB
     Dosage: 108 MILLIGRAM, Q2WEEKS
  4. OMEPRAZOLE [Concomitant]
     Active Substance: OMEPRAZOLE
  5. VALACYCLOVIR [Concomitant]
     Active Substance: VALACYCLOVIR HYDROCHLORIDE
     Indication: Oral herpes
  6. IMURAN [Concomitant]
     Active Substance: AZATHIOPRINE
  7. BUSPIRONE [Concomitant]
     Active Substance: BUSPIRONE HYDROCHLORIDE
  8. ZYRTEC [Concomitant]
     Active Substance: CETIRIZINE HYDROCHLORIDE
  9. COLESTIPOL [Concomitant]
     Active Substance: COLESTIPOL
  10. FLONASE [Concomitant]
     Active Substance: FLUTICASONE PROPIONATE
  11. LOSARTAN [Concomitant]
     Active Substance: LOSARTAN
  12. MECLIZINE [Concomitant]
     Active Substance: MECLIZINE HYDROCHLORIDE
  13. METFORMIN [Concomitant]
     Active Substance: METFORMIN HYDROCHLORIDE
  14. ACETAMINOPHEN [Concomitant]
     Active Substance: ACETAMINOPHEN
     Indication: Fungal infection

REACTIONS (12)
  - Loss of consciousness [Recovering/Resolving]
  - Diabetes mellitus [Recovering/Resolving]
  - Syncope [Recovering/Resolving]
  - Drug ineffective [Unknown]
  - Poor venous access [Unknown]
  - Inappropriate schedule of product administration [Unknown]
  - Heart rate increased [Recovered/Resolved]
  - Musculoskeletal chest pain [Recovered/Resolved]
  - Dizziness [Recovered/Resolved]
  - Blood pressure increased [Recovered/Resolved]
  - Nasopharyngitis [Not Recovered/Not Resolved]
  - Pain in extremity [Recovered/Resolved]

NARRATIVE: CASE EVENT DATE: 20250104
